FAERS Safety Report 9802341 (Version 2)
Quarter: 2014Q1

REPORT INFORMATION
  Report Type: Spontaneous
  Country: US (occurrence: US)
  Receive Date: 20140107
  Receipt Date: 20140213
  Transmission Date: 20141002
  Serious: No
  Sender: FDA-Public Use
  Company Number: US-PFIZER INC-2014003809

PATIENT
  Age: 61 Year
  Sex: Female
  Weight: 59.86 kg

DRUGS (2)
  1. CHANTIX [Suspect]
     Indication: SMOKING CESSATION THERAPY
     Dosage: 0.5 MG, 1X/DAY
     Route: 048
  2. ALLEGRA [Concomitant]
     Dosage: UNK, 1X/DAY

REACTIONS (1)
  - Thyroid function test abnormal [Unknown]
